FAERS Safety Report 8287242-2 (Version None)
Quarter: 2012Q2

REPORT INFORMATION
  Report Type: 
  Country: None (occurrence: None)
  Receive Date: 20120411
  Receipt Date: 20120403
  Transmission Date: 20120825
  Serious: Yes (Hospitalization)
  Sender: FDA-Public Use
  Company Number: WAES 1203KOR00004

PATIENT
  Age: 51 Year
  Sex: Male

DRUGS (41)
  1. CALCIUM POLYSTYRENE SULFONATE [Concomitant]
  2. FLUCONAZOLE [Concomitant]
  3. GABAPENTIN [Concomitant]
  4. METHYLPREDNISOLONE SODIUM SUCCINATE [Concomitant]
  5. BACLOFEN [Concomitant]
  6. LOPINAVIR/RITONAVIR [Concomitant]
  7. PYRIDOXINE HCL [Concomitant]
  8. ISENTRESS [Suspect]
     Indication: HIV INFECTION
     Dosage: 400 MG/BID PO
     Route: 048
     Dates: start: 20110430
  9. SPIRONOLACTONE AND HYDROCHLOROTHIAZIDE [Concomitant]
  10. CODEINE PHOSPHATE [Concomitant]
  11. DEXAMETHASONE [Concomitant]
  12. DIMENHYDRINATE [Concomitant]
  13. ETRAVIRINE [Concomitant]
  14. GINKGO [Concomitant]
  15. LENOGRASTIM [Concomitant]
  16. LEVOFLOPERASTINE FENDIZOATE [Concomitant]
  17. MEROPENEM [Concomitant]
  18. METOCLPRAMIDE HYDROCHLORIDE [Concomitant]
  19. METRONIDAZOLE [Concomitant]
  20. PRIMAQUINE [Concomitant]
  21. RIFABUTIN [Concomitant]
  22. CHLORPROMAZINE [Concomitant]
  23. DIAZEPAM [Concomitant]
  24. INSULIN GLARGINE [Concomitant]
  25. MEGESTREL ACETATE [Concomitant]
  26. PYRAZINAMIDE [Concomitant]
  27. SMECTITE (+) VANILLA [Concomitant]
  28. CEFTRIAXONE SODIUM [Concomitant]
  29. GANCICLOVIR SODIUM [Concomitant]
  30. LAMIVUDINE [Concomitant]
  31. PANTOPRAZOLE SODIUM [Concomitant]
  32. PREDNISOLONE ACETATE [Concomitant]
  33. CLINDAMYCIN HCL [Concomitant]
  34. DARUNAVIR [Concomitant]
  35. METFORMIN HCL [Concomitant]
  36. ISONIAZID [Concomitant]
  37. LEVOFLOXACIN [Concomitant]
  38. RITONAVIR [Concomitant]
  39. SULFAMETHOXAZOLE AND TRIMETHOPRIM [Concomitant]
  40. AMTRIPTYLINE HYDROCHLORIDE [Concomitant]
  41. ETHAMBUTOL HYDROCHLORIDE [Concomitant]

REACTIONS (10)
  - HICCUPS [None]
  - HYPERKALAEMIA [None]
  - ASTHENIA [None]
  - PANCYTOPENIA [None]
  - NEUTROPENIA [None]
  - DELIRIUM [None]
  - DIZZINESS [None]
  - DIARRHOEA [None]
  - PNEUMOCYSTIS JIROVECI PNEUMONIA [None]
  - DYSPHAGIA [None]
